FAERS Safety Report 8789456 (Version 1)
Quarter: 2012Q4

REPORT INFORMATION
  Report Type: Spontaneous
  Country: US (occurrence: None)
  Receive Date: 20120905
  Receipt Date: 20120905
  Transmission Date: 20130627
  Serious: Yes (Other)
  Sender: FDA-Public Use
  Company Number: AUR-APL-2012-03764

PATIENT
  Age: 21 Year
  Sex: Female

DRUGS (2)
  1. MINOCYCLINE [Suspect]
     Indication: ACNE
  2. ORTHO-TRI-CYCLEN LO(CILEST) [Concomitant]

REACTIONS (10)
  - Polyarteritis nodosa [None]
  - Fatigue [None]
  - Myalgia [None]
  - Weight decreased [None]
  - Headache [None]
  - Tachycardia [None]
  - Hypertension [None]
  - Hyponatraemia [None]
  - Hypokalaemia [None]
  - Renal disorder [None]
